FAERS Safety Report 9710223 (Version 1)
Quarter: 2013Q4

REPORT INFORMATION
  Report Type: Spontaneous
  Country: US (occurrence: US)
  Receive Date: 20131126
  Receipt Date: 20131126
  Transmission Date: 20140711
  Serious: Yes (Other)
  Sender: FDA-Public Use
  Company Number: US-PFIZER INC-2013334427

PATIENT
  Age: 3 Year
  Sex: Male

DRUGS (7)
  1. AZITHROMYCIN [Suspect]
     Dosage: UNK
  2. ZITHROMAX [Suspect]
     Indication: OTITIS MEDIA ACUTE
     Dosage: UNK
     Route: 048
     Dates: start: 20101218
  3. ZITHROMAX [Suspect]
     Indication: PHARYNGITIS STREPTOCOCCAL
     Dosage: 7.5ML (100MG/5ML) ON DAY ONE AND 3.5ML FOR NEXT FOUR DAYS ONCE DAILY
     Route: 048
     Dates: start: 20130201
  4. ZITHROMAX [Suspect]
     Indication: ACUTE SINUSITIS
  5. BENADRYL [Concomitant]
     Indication: COUGH
     Dosage: UNK, AT BEDTIME
  6. MIRALAX [Concomitant]
     Dosage: 5 G, AS NEEDED
     Route: 048
  7. ATROPINE [Concomitant]
     Dosage: 1% OPHTHALMIC SOLUTION (ONE DROP INTO LEFT EYE AT BEDTIME ONCE DAILY
     Route: 047

REACTIONS (1)
  - Stevens-Johnson syndrome [Unknown]
